FAERS Safety Report 16181044 (Version 1)
Quarter: 2019Q2

REPORT INFORMATION
  Report Type: Report from Study
  Country: DE (occurrence: DE)
  Receive Date: 20190410
  Receipt Date: 20190410
  Transmission Date: 20190711
  Serious: Yes (Other)
  Sender: FDA-Public Use
  Company Number: DE-TEVA-2019-DE-1034011

PATIENT
  Age: 56 Year
  Sex: Female

DRUGS (2)
  1. CYCLOSPORIN [Suspect]
     Active Substance: CYCLOSPORINE
     Indication: IMMUNE SYSTEM DISORDER
     Dosage: 250 MILLIGRAM DAILY;
     Route: 048
  2. CYCLOSPORIN [Suspect]
     Active Substance: CYCLOSPORINE
     Indication: HEART TRANSPLANT
     Dosage: 300 MILLIGRAM DAILY; 150 MG, BID
     Route: 048
     Dates: start: 19950224

REACTIONS (3)
  - Rash [Recovered/Resolved]
  - Herpes zoster [Recovered/Resolved]
  - Serology positive [Recovered/Resolved]

NARRATIVE: CASE EVENT DATE: 19950531
